FAERS Safety Report 16951218 (Version 1)
Quarter: 2019Q4

REPORT INFORMATION
  Report Type: Spontaneous
  Country: CA (occurrence: CA)
  Receive Date: 20191023
  Receipt Date: 20191023
  Transmission Date: 20200122
  Serious: Yes (Life-Threatening, Hospitalization, Other)
  Sender: FDA-Public Use
  Company Number: CA-PFIZER INC-2019453786

PATIENT
  Age: 12 Year
  Sex: Male
  Weight: 28 kg

DRUGS (11)
  1. AMOXICILLIN. [Concomitant]
     Active Substance: AMOXICILLIN
     Dosage: UNK
  2. CLONAZEPAM. [Concomitant]
     Active Substance: CLONAZEPAM
     Dosage: UNK
  3. LEVETIRACETAM. [Concomitant]
     Active Substance: LEVETIRACETAM
     Dosage: UNK
  4. PHENOBARBITAL. [Suspect]
     Active Substance: PHENOBARBITAL
     Dosage: 75 MG, 2X/DAY (1 EVERY 12 HOUR(S)): 2 DAYS DURATION
     Route: 048
  5. PHENYTOIN SODIUM. [Suspect]
     Active Substance: PHENYTOIN SODIUM
     Indication: SEIZURE
     Dosage: 80 MG, 3X/DAY, (1 EVERY 8 DAY(S))
     Route: 042
  6. PHENYTOIN SODIUM. [Suspect]
     Active Substance: PHENYTOIN SODIUM
     Dosage: 100 MG, 2X/DAY, (1 EVERY 12 DAY(S)): 11 DAYS DURATION
     Route: 042
  7. PHENOBARBITAL. [Suspect]
     Active Substance: PHENOBARBITAL
     Dosage: 100 MG, 2X/DAY (1 EVERY 12 HOUR(S)): 8 DAYS DURATION
     Route: 042
  8. PHENYTOIN. [Suspect]
     Active Substance: PHENYTOIN
     Dosage: 95 MG, 3X/DAY, (1 EVERY 8 DAY(S)): 5 DAYS DURATION
     Route: 048
  9. PHENOBARBITAL. [Suspect]
     Active Substance: PHENOBARBITAL
     Dosage: 50 MG, 2X/DAY (1 EVERY 12 HOUR(S)): 2 DAYS DURATION
     Route: 048
  10. PHENOBARBITAL. [Suspect]
     Active Substance: PHENOBARBITAL
     Dosage: 25 MG, 2X/DAY (1 EVERY 12 HOUR(S)): 2 DAYS DURATION
     Route: 048
  11. AMOXICILLIN AND CLAVULANATE POTASSIUM [Concomitant]
     Active Substance: AMOXICILLIN\CLAVULANATE POTASSIUM
     Dosage: UNK

REACTIONS (4)
  - Drug reaction with eosinophilia and systemic symptoms [Recovered/Resolved]
  - Respiratory distress [Recovered/Resolved]
  - Rash [Recovered/Resolved]
  - Pyrexia [Recovered/Resolved]
